FAERS Safety Report 13004974 (Version 3)
Quarter: 2017Q2

REPORT INFORMATION
  Report Type: Report from Study
  Country: JP (occurrence: JP)
  Receive Date: 20161207
  Receipt Date: 20170509
  Transmission Date: 20170830
  Serious: Yes (Death, Hospitalization)
  Sender: FDA-Public Use
  Company Number: JP-ROCHE-1162405

PATIENT
  Age: 33 Year
  Sex: Female
  Weight: 50 kg

DRUGS (24)
  1. GLORIAMIN [Concomitant]
     Route: 048
  2. EPERISONE HYDROCHLORIDE [Concomitant]
     Active Substance: EPERISONE HYDROCHLORIDE
     Indication: MUSCLE TIGHTNESS
     Dosage: DRUG REPORTED AS RINPRAL
     Route: 048
  3. LOXONIN [Concomitant]
     Active Substance: LOXOPROFEN SODIUM
     Indication: RHEUMATOID ARTHRITIS
     Route: 048
  4. CELECOX [Concomitant]
     Active Substance: CELECOXIB
     Indication: PAIN
     Route: 048
  5. ALESION [Concomitant]
     Active Substance: EPINASTINE HYDROCHLORIDE
     Indication: SEASONAL ALLERGY
     Route: 048
     Dates: start: 20110203
  6. OCRELIZUMAB [Suspect]
     Active Substance: OCRELIZUMAB
     Indication: RHEUMATOID ARTHRITIS
     Dosage: DAY1 AND DAY15 ADMINISTERING
     Route: 042
     Dates: start: 20090909, end: 20090924
  7. PREDNISOLONE. [Suspect]
     Active Substance: PREDNISOLONE
     Indication: RHEUMATOID ARTHRITIS
     Route: 048
     Dates: start: 20121010
  8. MUCOSTA [Concomitant]
     Active Substance: REBAMIPIDE
     Indication: GASTRITIS
     Route: 048
  9. METHYCOOL [Concomitant]
     Active Substance: METHYLCOBALAMIN
     Indication: NEUROPATHY PERIPHERAL
     Route: 048
  10. INTEBAN [Concomitant]
     Active Substance: INDOMETHACIN
     Indication: PAIN
     Route: 003
  11. MOHRUS TAPE [Concomitant]
     Active Substance: KETOPROFEN
     Indication: PAIN
     Route: 061
  12. ACUATIM [Concomitant]
     Active Substance: NADIFLOXACIN
     Indication: FOLLICULITIS
     Route: 003
  13. DEPAS [Concomitant]
     Active Substance: ETIZOLAM
     Indication: RHEUMATOID ARTHRITIS
     Route: 048
     Dates: start: 20120314
  14. ETIZOLAM [Concomitant]
     Active Substance: ETIZOLAM
     Indication: MUSCLE TIGHTNESS
     Dosage: DRUG REPORTED S MEDIPEACE
     Route: 048
  15. RINPRAL [Concomitant]
     Active Substance: EPERISONE
     Indication: MUSCLE TIGHTNESS
     Route: 048
  16. OCRELIZUMAB [Suspect]
     Active Substance: OCRELIZUMAB
     Indication: RHEUMATOID ARTHRITIS
     Dosage: DAY1 AND DAY15 ADMINISTERING
     Route: 042
     Dates: start: 20090219, end: 20090305
  17. METHOTREXATE. [Suspect]
     Active Substance: METHOTREXATE
     Indication: RHEUMATOID ARTHRITIS
     Route: 048
     Dates: end: 20120607
  18. MYONAL (JAPAN) [Concomitant]
     Active Substance: EPERISONE HYDROCHLORIDE
     Indication: RHEUMATOID ARTHRITIS
     Route: 048
     Dates: start: 20110314
  19. MOHRUS TAPE [Concomitant]
     Active Substance: KETOPROFEN
     Indication: RHEUMATOID ARTHRITIS
  20. DERMOVATE [Concomitant]
     Active Substance: CLOBETASOL
     Indication: ECZEMA
     Route: 003
  21. OCRELIZUMAB [Suspect]
     Active Substance: OCRELIZUMAB
     Indication: RHEUMATOID ARTHRITIS
  22. TOCILIZUMAB [Suspect]
     Active Substance: TOCILIZUMAB
     Indication: RHEUMATOID ARTHRITIS
     Route: 042
     Dates: start: 20120403, end: 20120912
  23. LANSOPRAZOLE. [Concomitant]
     Active Substance: LANSOPRAZOLE
     Indication: GASTRIC ULCER
     Route: 048
  24. GLORIAMIN [Concomitant]
     Indication: GASTRITIS
     Dosage: 2GM/DAY
     Route: 048

REACTIONS (3)
  - Ovarian neoplasm [Fatal]
  - Superior vena cava syndrome [Unknown]
  - Metastases to lung [Fatal]

NARRATIVE: CASE EVENT DATE: 20121126
